FAERS Safety Report 9123748 (Version 2)
Quarter: 2013Q2

REPORT INFORMATION
  Report Type: Spontaneous
  Country: DE (occurrence: DE)
  Receive Date: 20130227
  Receipt Date: 20130418
  Transmission Date: 20140414
  Serious: Yes (Other)
  Sender: FDA-Public Use
  Company Number: DE-ROCHE-1195000

PATIENT
  Sex: Female
  Weight: 99 kg

DRUGS (8)
  1. AVASTIN [Suspect]
     Indication: MALIGNANT PERITONEAL NEOPLASM
     Route: 042
     Dates: start: 20121124
  2. CARBOPLATIN [Suspect]
     Indication: MALIGNANT PERITONEAL NEOPLASM
     Route: 042
     Dates: start: 20120713, end: 20130110
  3. PACLITAXEL [Suspect]
     Indication: MALIGNANT PERITONEAL NEOPLASM
     Route: 042
     Dates: start: 20120713, end: 20130110
  4. DIGITOXIN [Concomitant]
     Indication: HYPERTENSION
     Route: 048
  5. BISOPROLOL [Concomitant]
     Indication: HYPERTENSION
     Route: 048
  6. RAMIPRIL [Concomitant]
     Indication: HYPERTENSION
     Route: 048
  7. SIMVASTATIN [Concomitant]
     Route: 048
  8. L-THYROXIN [Concomitant]
     Route: 048

REACTIONS (2)
  - Dizziness [Recovering/Resolving]
  - Balance disorder [Unknown]
